FAERS Safety Report 10060253 (Version 2)
Quarter: 2014Q2

REPORT INFORMATION
  Report Type: Spontaneous
  Country: BR (occurrence: BR)
  Receive Date: 20140404
  Receipt Date: 20140410
  Transmission Date: 20141212
  Serious: Yes (Hospitalization, Other)
  Sender: FDA-Public Use
  Company Number: BR-JNJFOC-20140401725

PATIENT
  Sex: Male

DRUGS (3)
  1. ULTRACET [Suspect]
     Indication: PAIN
     Route: 065
  2. TYLEX [Suspect]
     Indication: PAIN
     Dosage: ONCE IN 12 HOUR
     Route: 065
  3. PREGABALIN [Concomitant]
     Indication: PAIN
     Route: 065

REACTIONS (2)
  - Surgery [Recovering/Resolving]
  - Nosocomial infection [Recovering/Resolving]
